FAERS Safety Report 15296726 (Version 2)
Quarter: 2018Q3

REPORT INFORMATION
  Report Type: Report from Study
  Country: CZ (occurrence: CZ)
  Receive Date: 20180820
  Receipt Date: 20180831
  Transmission Date: 20181010
  Serious: Yes (Hospitalization)
  Sender: FDA-Public Use
  Company Number: CZ-BAYER-2018-151237

PATIENT
  Age: 35 Year
  Sex: Female
  Weight: 80 kg

DRUGS (1)
  1. MIRENA [Suspect]
     Active Substance: LEVONORGESTREL
     Indication: CONTRACEPTION
     Dosage: 20 MCG/24HR, CONT
     Route: 015
     Dates: start: 20180515, end: 20180629

REACTIONS (7)
  - Abdominal pain [Recovered/Resolved]
  - Drug ineffective [None]
  - Haemorrhagic anaemia [None]
  - Ectopic pregnancy with contraceptive device [Recovered/Resolved]
  - Fallopian tube enlargement [None]
  - Peritoneal haemorrhage [Recovered/Resolved]
  - Haemorrhage in pregnancy [Recovered/Resolved]

NARRATIVE: CASE EVENT DATE: 20180629
